FAERS Safety Report 9130390 (Version 1)
Quarter: 2013Q1

REPORT INFORMATION
  Report Type: Spontaneous
  Country: US (occurrence: US)
  Receive Date: 20130228
  Receipt Date: 20130228
  Transmission Date: 20140127
  Serious: No
  Sender: FDA-Public Use
  Company Number: US-BAYER-2013-021676

PATIENT
  Age: 56 Year
  Sex: Female
  Weight: 111 kg

DRUGS (13)
  1. BRONKAID [Suspect]
     Indication: ASTHMA
     Dosage: 1 DF, QID
     Route: 048
     Dates: start: 1983
  2. ALEVE CAPLET/TABLET,MIDOL EXTENDED RELIEF CAPLET [Suspect]
     Dosage: 1 DF, QD
     Route: 048
     Dates: start: 2008
  3. PROVENTIL [Concomitant]
  4. SINGULAIR [Concomitant]
  5. SYNTHROID [Concomitant]
  6. METFORMIN [Concomitant]
  7. NASALCROM [Concomitant]
  8. L-LYSINE [Concomitant]
  9. VITAMIN B [Concomitant]
  10. MULTIVITAMINS [Concomitant]
  11. POTASSIUM [Concomitant]
  12. MAGNESIUM [Concomitant]
  13. VENTOLIN [Concomitant]

REACTIONS (4)
  - Inappropriate schedule of drug administration [None]
  - Incorrect drug administration duration [None]
  - Off label use [None]
  - Drug ineffective [None]
